FAERS Safety Report 5960860-X (Version None)
Quarter: 2008Q4

REPORT INFORMATION
  Report Type: 
  Country: None (occurrence: None)
  Receive Date: 20081114
  Receipt Date: 20081010
  Transmission Date: 20090506
  Serious: No
  Sender: FDA-Public Use
  Company Number: PHEH2008US09312

PATIENT
  Sex: Female

DRUGS (3)
  1. TEKTURNA HCT [Suspect]
     Dosage: 300
     Dates: start: 20080925
  2. POTASSIUM (POTASSIUM) [Concomitant]
  3. LASIX [Concomitant]

REACTIONS (1)
  - DIARRHOEA [None]
